FAERS Safety Report 7651076-X (Version None)
Quarter: 2011Q3

REPORT INFORMATION
  Report Type: 
  Country: None (occurrence: None)
  Receive Date: 20110802
  Receipt Date: 20110615
  Transmission Date: 20111222
  Serious: Yes (Hospitalization)
  Sender: FDA-Public Use
  Company Number: PHHO2010DE04390

PATIENT
  Sex: Male
  Weight: 62.4 kg

DRUGS (4)
  1. SANDIMMUNE [Suspect]
     Indication: RENAL TRANSPLANT
     Dosage: 200 MG, BID
     Route: 048
     Dates: start: 20100220
  2. METHYLPREDNISOLONE [Suspect]
     Indication: RENAL TRANSPLANT
     Dosage: 24 MG, QD
     Route: 048
  3. NO TREATMENT RECEIVED [Suspect]
     Indication: RENAL TRANSPLANT
     Dosage: NO TREATMENT
     Route: 048
  4. MYFORTIC [Suspect]
     Indication: RENAL TRANSPLANT
     Dosage: 720 MG, BID
     Route: 048

REACTIONS (5)
  - URINE OUTPUT DECREASED [None]
  - NEPHROPATHY TOXIC [None]
  - RENAL IMPAIRMENT [None]
  - TACHYCARDIA [None]
  - PULMONARY OEDEMA [None]
